FAERS Safety Report 4712641-2 (Version None)
Quarter: 2005Q3

REPORT INFORMATION
  Report Type: 
  Country: None (occurrence: None)
  Receive Date: 20050712
  Receipt Date: 20050517
  Transmission Date: 20060218
  Serious: Yes (Hospitalization)
  Sender: FDA-Public Use
  Company Number: DE-MERCK-0505DEU00125

PATIENT
  Age: 38 Year
  Sex: Male
  Weight: 78 kg

DRUGS (14)
  1. VIOXX [Suspect]
     Indication: RHEUMATOID ARTHRITIS
     Route: 048
     Dates: start: 20030528, end: 20031027
  2. VIOXX [Suspect]
     Route: 048
     Dates: start: 20031027, end: 20040101
  3. METHOTREXATE SODIUM [Concomitant]
     Route: 065
     Dates: start: 20030501
  4. METHOTREXATE SODIUM [Concomitant]
     Route: 065
     Dates: start: 20031027, end: 20040903
  5. METHOTREXATE SODIUM [Concomitant]
     Route: 065
     Dates: start: 20030528, end: 20031027
  6. METHYLPREDNISOLONE [Concomitant]
     Route: 065
     Dates: start: 20030528
  7. METHYLPREDNISOLONE [Concomitant]
     Route: 065
  8. METHYLPREDNISOLONE [Concomitant]
     Route: 065
  9. METHYLPREDNISOLONE [Concomitant]
     Route: 065
     Dates: start: 20030501
  10. RABEPRAZOLE SODIUM [Concomitant]
     Route: 065
  11. MINOCYCLINE [Concomitant]
     Route: 065
  12. CALCIUM GLUCONATE AND CALCIUM PHOSPHATE TRIBASIC AND CHOLECALCIFEROL [Concomitant]
     Route: 065
  13. MELOXICAM [Concomitant]
     Route: 065
  14. FOLIC ACID [Concomitant]
     Route: 065

REACTIONS (5)
  - ACNE [None]
  - BURSITIS [None]
  - DEEP VEIN THROMBOSIS [None]
  - HEADACHE [None]
  - RASH [None]
